FAERS Safety Report 6911810-0 (Version None)
Quarter: 2010Q3

REPORT INFORMATION
  Report Type: 
  Country: None (occurrence: None)
  Receive Date: 20100806
  Receipt Date: 20070822
  Transmission Date: 20110219
  Serious: No
  Sender: FDA-Public Use
  Company Number: US-PFIZER INC-2007069703

PATIENT
  Sex: Female
  Weight: 59.1 kg

DRUGS (9)
  1. DETROL LA [Suspect]
     Indication: MICTURITION URGENCY
     Route: 048
     Dates: start: 20070815
  2. ACTONEL [Concomitant]
     Indication: OSTEOPENIA
     Route: 048
     Dates: start: 20030101
  3. ANTIHYPERTENSIVES [Concomitant]
     Indication: HYPERTENSION
     Route: 048
     Dates: start: 20040101
  4. ACIPHEX [Concomitant]
     Indication: GASTROOESOPHAGEAL REFLUX DISEASE
     Route: 048
  5. LIPITOR [Concomitant]
     Indication: BLOOD CHOLESTEROL INCREASED
     Route: 048
  6. CELEBREX [Concomitant]
     Indication: ARTHRITIS
     Route: 048
  7. CYCLOSPORINE [Concomitant]
     Route: 047
  8. GENTEAL [Concomitant]
     Route: 047
  9. CYSTINE [Concomitant]
     Route: 047

REACTIONS (2)
  - DRY EYE [None]
  - DRY THROAT [None]
